FAERS Safety Report 8102617-X (Version None)
Quarter: 2012Q1

REPORT INFORMATION
  Report Type: 
  Country: None (occurrence: None)
  Receive Date: 20120126
  Receipt Date: 20120116
  Transmission Date: 20120608
  Serious: Yes (Hospitalization, Other)
  Sender: FDA-Public Use
  Company Number: 2012P1003042

PATIENT
  Age: 27 Year
  Sex: Male

DRUGS (1)
  1. PROPYLTHIOURACIL TABLETS USP 50 MG (NO PREF. NAME) [Suspect]
     Indication: HYPERTHYROIDISM
     Dosage: 150 MG;TID

REACTIONS (5)
  - LUPUS-LIKE SYNDROME [None]
  - DOUBLE STRANDED DNA ANTIBODY POSITIVE [None]
  - EMBOLIC STROKE [None]
  - ISCHAEMIC STROKE [None]
  - ATRIAL SEPTAL DEFECT [None]
